FAERS Safety Report 4711916-0 (Version None)
Quarter: 2005Q2

REPORT INFORMATION
  Report Type: 
  Country: None (occurrence: None)
  Receive Date: 20050629
  Receipt Date: 20050510
  Transmission Date: 20051028
  Serious: No
  Sender: FDA-Public Use
  Company Number: 05P-163-0300172-00

PATIENT
  Age: 56 Year
  Sex: Female
  Weight: 104 kg

DRUGS (13)
  1. HUMIRA [Suspect]
     Indication: RHEUMATOID ARTHRITIS
     Dosage: 40 MG, 1 IN 2 WK, SUBCUTANEOUS
     Route: 058
     Dates: start: 20050401
  2. HYDROXYCHLOROQUINE PHOSPHATE [Concomitant]
  3. METHOTREXATE SODIUM [Concomitant]
  4. MECLIZINE [Concomitant]
  5. LOTRISONE [Concomitant]
  6. PREDNISONE [Concomitant]
  7. FOLIC ACID [Concomitant]
  8. TRIAMTERENE [Concomitant]
  9. LANSOPRAZOLE [Concomitant]
  10. SALBUTAMOL [Concomitant]
  11. METOCLOPRAMIDE [Concomitant]
  12. SINGULAIR [Concomitant]
  13. COUMADIN [Concomitant]

REACTIONS (1)
  - INJECTION SITE IRRITATION [None]
